FAERS Safety Report 8607453 (Version 3)
Quarter: 2014Q2

REPORT INFORMATION
  Report Type: Spontaneous
  Country: US (occurrence: US)
  Receive Date: 20120611
  Receipt Date: 20140527
  Transmission Date: 20141212
  Serious: No
  Sender: FDA-Public Use
  Company Number: US-ASTRAZENECA-2012SE35254

PATIENT
  Age: 51 Year
  Sex: Female
  Weight: 49.9 kg

DRUGS (6)
  1. NEXIUM [Suspect]
     Route: 048
     Dates: start: 200910
  2. NEXIUM [Suspect]
     Route: 048
     Dates: start: 20091007
  3. PEPTO-BISMOL [Concomitant]
     Dosage: ONCE A DAY
  4. CARISOPRODOL [Concomitant]
     Route: 048
     Dates: start: 20090807
  5. ALENDRONATE [Concomitant]
     Route: 048
     Dates: start: 20091008
  6. NAPROXEN [Concomitant]
     Route: 048
     Dates: start: 20100216

REACTIONS (6)
  - Osteoporosis [Unknown]
  - Multiple fractures [Unknown]
  - Joint injury [Unknown]
  - Contusion [Unknown]
  - Osteopenia [Unknown]
  - Accident [Unknown]
